FAERS Safety Report 9007491 (Version 1)
Quarter: 2013Q1

REPORT INFORMATION
  Report Type: Spontaneous
  Country: US (occurrence: US)
  Receive Date: 20130111
  Receipt Date: 20130111
  Transmission Date: 20140127
  Serious: Yes (Life-Threatening, Hospitalization, Disabling, Other)
  Sender: FDA-Public Use
  Company Number: US-009507513-0901USA02259

PATIENT
  Age: 17 Year
  Sex: Female
  Weight: 49.9 kg

DRUGS (1)
  1. SINGULAIR [Suspect]
     Indication: ASTHMA EXERCISE INDUCED
     Dosage: 10 MG, QD
     Route: 048
     Dates: start: 20060105, end: 20080327

REACTIONS (9)
  - Abnormal behaviour [Recovered/Resolved]
  - Anxiety [Recovered/Resolved]
  - Attention deficit/hyperactivity disorder [Recovered/Resolved]
  - Crying [Recovered/Resolved]
  - Depression [Recovered/Resolved]
  - Educational problem [Recovered/Resolved]
  - Social problem [Recovered/Resolved]
  - Stress [Recovered/Resolved]
  - Suicidal ideation [Recovered/Resolved]
